FAERS Safety Report 17833227 (Version 2)
Quarter: 2020Q2

REPORT INFORMATION
  Report Type: Spontaneous
  Country: US (occurrence: US)
  Receive Date: 20200528
  Receipt Date: 20200623
  Transmission Date: 20200714
  Serious: Yes (Hospitalization, Other)
  Sender: FDA-Public Use
  Company Number: US-HIKMA PHARMACEUTICALS USA INC.-US-H14001-20-02418

PATIENT
  Age: 5 Year
  Sex: Female

DRUGS (11)
  1. CLOFARABINE. [Suspect]
     Active Substance: CLOFARABINE
     Route: 065
  2. DEXAMETHASONE. [Concomitant]
     Active Substance: DEXAMETHASONE
     Indication: MYELOID LEUKAEMIA
     Route: 065
  3. GRANULOCYTE COLONY STIMULATING FACTOR [Concomitant]
     Active Substance: GRANULOCYTE COLONY-STIMULATING FACTOR NOS
     Indication: MYELOID LEUKAEMIA
     Route: 065
  4. CYTARABINE. [Suspect]
     Active Substance: CYTARABINE
     Route: 037
  5. TOPOTECAN [Suspect]
     Active Substance: TOPOTECAN HYDROCHLORIDE
     Indication: MYELOID LEUKAEMIA
     Route: 065
  6. CYTARABINE. [Suspect]
     Active Substance: CYTARABINE
     Indication: MYELOID LEUKAEMIA
     Route: 037
  7. CLOFARABINE. [Suspect]
     Active Substance: CLOFARABINE
     Indication: MYELOID LEUKAEMIA
     Route: 065
  8. CYTARABINE. [Suspect]
     Active Substance: CYTARABINE
     Route: 037
  9. CYTARABINE. [Suspect]
     Active Substance: CYTARABINE
     Route: 037
  10. VINORELBINE [Suspect]
     Active Substance: VINORELBINE TARTRATE
     Indication: MYELOID LEUKAEMIA
     Route: 065
  11. THIOTEPA. [Suspect]
     Active Substance: THIOTEPA
     Indication: MYELOID LEUKAEMIA
     Route: 065

REACTIONS (8)
  - Alpha haemolytic streptococcal infection [Recovered/Resolved]
  - Atrial thrombosis [Recovered/Resolved]
  - Cardio-respiratory arrest [Recovered/Resolved]
  - Staphylococcal infection [Recovered/Resolved]
  - Granulicatella infection [Recovered/Resolved]
  - Candida infection [Recovered/Resolved]
  - Adenovirus infection [Recovered/Resolved]
  - Endocarditis bacterial [Recovered/Resolved]
